FAERS Safety Report 18421832 (Version 4)
Quarter: 2021Q4

REPORT INFORMATION
  Report Type: Report from Study
  Country: GR (occurrence: GR)
  Receive Date: 20201023
  Receipt Date: 20211008
  Transmission Date: 20220303
  Serious: Yes (Hospitalization, Other)
  Sender: FDA-Public Use
  Company Number: GR-CELGENE-GRC-20200901427

PATIENT
  Age: 74 Year
  Sex: Male
  Weight: 68 kg

DRUGS (8)
  1. POMALIDOMIDE [Suspect]
     Active Substance: POMALIDOMIDE
     Indication: Plasma cell myeloma
     Route: 048
     Dates: start: 20200825, end: 20200825
  2. DEXAMETHASONE [Suspect]
     Active Substance: DEXAMETHASONE
     Indication: Plasma cell myeloma
     Route: 065
     Dates: start: 20120118, end: 20130521
  3. DEXAMETHASONE [Suspect]
     Active Substance: DEXAMETHASONE
     Route: 065
     Dates: start: 20190326, end: 20200623
  4. DEXAMETHASONE [Suspect]
     Active Substance: DEXAMETHASONE
     Dosage: DAYS 1, 8, 15, AND 22 FOR EACH 28-DAY CYCLE
     Route: 065
     Dates: start: 20200825, end: 20200825
  5. REVLIMID [Suspect]
     Active Substance: LENALIDOMIDE
     Indication: Plasma cell myeloma
     Route: 048
     Dates: start: 20190326, end: 20200623
  6. FEBUXOSTAT [Concomitant]
     Active Substance: FEBUXOSTAT
     Indication: Prophylaxis
     Dosage: 80 MILLIGRAM
     Route: 048
     Dates: start: 20200825, end: 20200909
  7. VALTREX [Concomitant]
     Active Substance: VALACYCLOVIR HYDROCHLORIDE
     Indication: Antibiotic prophylaxis
     Dosage: 500 MILLIGRAM
     Route: 048
     Dates: start: 20200806, end: 20200827
  8. NEXIUM [Concomitant]
     Active Substance: ESOMEPRAZOLE MAGNESIUM
     Indication: Prophylaxis
     Dosage: 80 MILLIGRAM
     Route: 041
     Dates: start: 20200826, end: 20200908

REACTIONS (3)
  - Adenocarcinoma of colon [Not Recovered/Not Resolved]
  - Tumour lysis syndrome [Recovered/Resolved]
  - Pneumonia pseudomonal [Recovered/Resolved]

NARRATIVE: CASE EVENT DATE: 20200827
